FAERS Safety Report 20910874 (Version 2)
Quarter: 2022Q2

REPORT INFORMATION
  Report Type: Report from Study
  Country: DE (occurrence: DE)
  Receive Date: 20220603
  Receipt Date: 20220613
  Transmission Date: 20220721
  Serious: Yes (Hospitalization)
  Sender: FDA-Public Use
  Company Number: DE-002147023-NVSC2022DE125788

PATIENT
  Age: 42 Year
  Sex: Male
  Weight: 120 kg

DRUGS (17)
  1. ERENUMAB [Suspect]
     Active Substance: ERENUMAB
     Indication: Migraine
     Dosage: 140 MG, MONTHLY
     Route: 065
     Dates: start: 20200312
  2. Allegro [Concomitant]
     Indication: Migraine
     Dosage: 2.5 MG, PRN
     Route: 048
     Dates: start: 200401
  3. ALMOTRIPTAN [Concomitant]
     Active Substance: ALMOTRIPTAN
     Indication: Migraine
     Dosage: 2.5 MG, PRN
     Route: 048
     Dates: start: 2018
  4. IBUPROFEN [Concomitant]
     Active Substance: IBUPROFEN
     Indication: Migraine
     Dosage: 600 MG, PRN
     Route: 065
     Dates: start: 199601
  5. PANTOPRAZOLE SODIUM [Concomitant]
     Active Substance: PANTOPRAZOLE SODIUM
     Indication: Gastrooesophageal reflux disease
     Dosage: 20 MG, PRN
     Route: 048
     Dates: start: 201401
  6. METAMIZOLE [Concomitant]
     Active Substance: METAMIZOLE
     Indication: Migraine
     Dosage: 500 MG, PRN
     Route: 048
     Dates: start: 2017
  7. SUMATRIPTAN SUCCINATE [Concomitant]
     Active Substance: SUMATRIPTAN SUCCINATE
     Indication: Migraine
     Dosage: 20 MG, PRN
     Route: 045
     Dates: start: 2017
  8. MCP [Concomitant]
     Active Substance: METOCLOPRAMIDE HYDROCHLORIDE
     Indication: Status migrainosus
     Dosage: 2 ML, ONCE/SINGLE
     Route: 042
     Dates: start: 20211119, end: 20211119
  9. MCP [Concomitant]
     Active Substance: METOCLOPRAMIDE HYDROCHLORIDE
     Dosage: 2 ML, ONCE/SINGLE
     Route: 042
     Dates: start: 20211122, end: 20211122
  10. MCP [Concomitant]
     Active Substance: METOCLOPRAMIDE HYDROCHLORIDE
     Dosage: 2 ML, ONCE/SINGLE
     Route: 042
     Dates: start: 20211124, end: 20211124
  11. ASPIRIN DL-LYSINE [Concomitant]
     Active Substance: ASPIRIN DL-LYSINE
     Indication: Status migrainosus
     Dosage: 1 G, ONCE/SINGLE
     Route: 042
     Dates: start: 20211119, end: 20211119
  12. ASPIRIN DL-LYSINE [Concomitant]
     Active Substance: ASPIRIN DL-LYSINE
     Dosage: 1 G, ONCE/SINGLE
     Route: 042
     Dates: start: 20211122, end: 20211122
  13. ASPIRIN DL-LYSINE [Concomitant]
     Active Substance: ASPIRIN DL-LYSINE
     Dosage: 1 G, ONCE/SINGLE
     Route: 042
     Dates: start: 20211124, end: 20211124
  14. SOLU DACORTIN [Concomitant]
     Indication: Status migrainosus
     Dosage: 100 MG, ONCE/SINGLE
     Route: 042
     Dates: start: 20211119, end: 20211119
  15. SOLU DACORTIN [Concomitant]
     Dosage: 100 MG, ONCE/SINGLE
     Route: 042
     Dates: start: 20211122, end: 20211122
  16. SOLU DACORTIN [Concomitant]
     Dosage: 100 MG, ONCE/SINGLE
     Route: 042
     Dates: start: 20211124, end: 20211124
  17. DONTISOLON [Concomitant]
     Indication: Gingivitis
     Dosage: 0.5 ML, ONCE/SINGLE
     Route: 002
     Dates: start: 20220407, end: 20220407

REACTIONS (1)
  - Appendicitis [Recovered/Resolved]

NARRATIVE: CASE EVENT DATE: 20220525
